FAERS Safety Report 9372395 (Version 3)
Quarter: 2013Q3

REPORT INFORMATION
  Report Type: Spontaneous
  Country: AU (occurrence: AU)
  Receive Date: 20130627
  Receipt Date: 20130913
  Transmission Date: 20140515
  Serious: Yes (Hospitalization, Disabling, Other)
  Sender: FDA-Public Use
  Company Number: AU-AMGEN-AUSSP2013044698

PATIENT
  Age: 77 Year
  Sex: Female

DRUGS (5)
  1. XGEVA [Suspect]
     Indication: METASTASES TO BONE
     Dosage: 120 MG, Q4WK
     Route: 058
     Dates: start: 20120201
  2. XGEVA [Suspect]
     Indication: BREAST CANCER
  3. CALCIUM [Concomitant]
  4. VITAMIN D                          /00107901/ [Concomitant]
  5. CHEMOTHERAPEUTICS [Concomitant]

REACTIONS (7)
  - Intervertebral disc protrusion [Unknown]
  - Lymphoedema [Recovered/Resolved]
  - Procedural vomiting [Not Recovered/Not Resolved]
  - Lung disorder [Not Recovered/Not Resolved]
  - Pain [Recovered/Resolved]
  - Decreased appetite [Not Recovered/Not Resolved]
  - Incorrect drug administration duration [Unknown]
